FAERS Safety Report 5753334-2 (Version None)
Quarter: 2008Q2

REPORT INFORMATION
  Report Type: 
  Country: None (occurrence: None)
  Receive Date: 20080530
  Receipt Date: 20080519
  Transmission Date: 20081010
  Serious: Yes (Life-Threatening, Hospitalization)
  Sender: FDA-Public Use
  Company Number: KR-ABBOTT-07P-090-0428074-00

PATIENT
  Age: 65 Year
  Sex: Male
  Weight: 68 kg

DRUGS (4)
  1. HUMIRA [Suspect]
     Indication: RHEUMATOID ARTHRITIS
     Route: 058
     Dates: start: 20070913, end: 20071122
  2. METHOTREXATE [Concomitant]
     Indication: DRUG THERAPY
     Route: 048
  3. LAMIVUDINE [Concomitant]
     Indication: PROPHYLAXIS
     Dosage: 10 MG, DAILY
     Route: 048
  4. LAMIVUDINE [Concomitant]
     Indication: HEPATITIS B VIRUS

REACTIONS (2)
  - COLITIS [None]
  - PNEUMONIA [None]
